FAERS Safety Report 6127148-8 (Version None)
Quarter: 2009Q1

REPORT INFORMATION
  Report Type: 
  Country: None (occurrence: None)
  Receive Date: 20090320
  Receipt Date: 20081006
  Transmission Date: 20090719
  Serious: No
  Sender: FDA-Public Use
  Company Number: US-ABBOTT-08P-163-0480101-00

PATIENT
  Sex: Female
  Weight: 64.468 kg

DRUGS (2)
  1. E.E.S. [Suspect]
     Indication: DRUG USE FOR UNKNOWN INDICATION
     Route: 048
     Dates: start: 20070101
  2. MESALAZINE [Concomitant]
     Indication: CROHN'S DISEASE
     Route: 048
     Dates: end: 20070101

REACTIONS (1)
  - ABDOMINAL PAIN UPPER [None]
